FAERS Safety Report 17069629 (Version 1)
Quarter: 2019Q4

REPORT INFORMATION
  Report Type: Spontaneous
  Country: US (occurrence: US)
  Receive Date: 20191125
  Receipt Date: 20191125
  Transmission Date: 20200122
  Serious: Yes (Hospitalization)
  Sender: FDA-Public Use
  Company Number: US-ALLERGAN-1925708US

PATIENT
  Age: 70 Year
  Sex: Female

DRUGS (4)
  1. NAMENDA [Suspect]
     Active Substance: MEMANTINE HYDROCHLORIDE
     Indication: EXPOSURE TO RADIATION
     Dosage: 10 MG, BID
     Route: 065
     Dates: start: 201905, end: 20190628
  2. CALCIUM [Concomitant]
     Active Substance: CALCIUM
     Dosage: UNK
     Dates: end: 2019
  3. NAMENDA [Suspect]
     Active Substance: MEMANTINE HYDROCHLORIDE
     Dosage: 5 MG, BID
     Route: 065
     Dates: start: 20190511, end: 201905
  4. IRON [Concomitant]
     Active Substance: IRON
     Dosage: UNK
     Dates: end: 2019

REACTIONS (2)
  - Dizziness [Recovered/Resolved]
  - Constipation [Recovering/Resolving]

NARRATIVE: CASE EVENT DATE: 201905
